FAERS Safety Report 6112122-8 (Version None)
Quarter: 2009Q1

REPORT INFORMATION
  Report Type: 
  Country: None (occurrence: None)
  Receive Date: 20090310
  Receipt Date: 20090223
  Transmission Date: 20090719
  Serious: Yes (Other)
  Sender: FDA-Public Use
  Company Number: 232045K09USA

PATIENT
  Age: 31 Year
  Sex: Male
  Weight: 68 kg

DRUGS (1)
  1. REBIF [Suspect]
     Indication: MULTIPLE SCLEROSIS
     Dosage: 44 MCG, 3 IN 1 WEEKS, SUBCUTANEOUS
     Route: 058
     Dates: start: 20070507

REACTIONS (3)
  - IMPAIRED HEALING [None]
  - OPEN WOUND [None]
  - STAPHYLOCOCCAL INFECTION [None]
